FAERS Safety Report 13087649 (Version 1)
Quarter: 2017Q1

REPORT INFORMATION
  Report Type: Spontaneous
  Country: US (occurrence: US)
  Receive Date: 20170105
  Receipt Date: 20170105
  Transmission Date: 20170428
  Serious: Yes (Hospitalization)
  Sender: FDA-Public Use
  Company Number: US-ASTRAZENECA-2017SE00555

PATIENT
  Age: 0 Year
  Sex: Male
  Weight: 9.5 kg

DRUGS (5)
  1. ALBUTEROL. [Concomitant]
     Active Substance: ALBUTEROL
     Indication: LUNG DISORDER
     Route: 055
     Dates: start: 2016
  2. SYNAGIS [Suspect]
     Active Substance: PALIVIZUMAB
     Indication: RESPIRATORY SYNCYTIAL VIRUS INFECTION
     Route: 030
     Dates: start: 2016, end: 20161230
  3. PULMICORT RESPULES [Suspect]
     Active Substance: BUDESONIDE
     Indication: LUNG DISORDER
     Route: 055
     Dates: start: 201612
  4. PULMICORT RESPULES [Suspect]
     Active Substance: BUDESONIDE
     Indication: LUNG DISORDER
     Route: 055
     Dates: start: 2016, end: 201612
  5. SINGULAIR [Concomitant]
     Active Substance: MONTELUKAST SODIUM
     Indication: LUNG DISORDER
     Route: 048
     Dates: start: 2016

REACTIONS (7)
  - Off label use [Unknown]
  - Drug administered to patient of inappropriate age [Unknown]
  - Injection site reaction [Unknown]
  - Product use issue [Unknown]
  - Pneumonia [Unknown]
  - Off label use [Unknown]
  - Wheezing [Unknown]

NARRATIVE: CASE EVENT DATE: 2016
